FAERS Safety Report 8555726-5 (Version None)
Quarter: 2012Q3

REPORT INFORMATION
  Report Type: 
  Country: None (occurrence: None)
  Receive Date: 20120801
  Receipt Date: 20120723
  Transmission Date: 20120928
  Serious: Yes (Hospitalization)
  Sender: FDA-Public Use
  Company Number: US-009507513-1207USA010813

PATIENT

DRUGS (12)
  1. LIDOCAINE [Concomitant]
     Route: 061
  2. OXYCODONE HCL [Concomitant]
     Route: 048
  3. GABAPENTIN [Concomitant]
     Route: 048
  4. LANTUS [Concomitant]
     Dosage: UNK, HS
  5. CYMBALTA [Interacting]
  6. VITAMINS (UNSPECIFIED) [Concomitant]
     Route: 048
  7. INSULIN LISPRO [Concomitant]
     Dosage: 30 MINS BEFORE MEALS
  8. ACETAMINOPHEN [Interacting]
     Dosage: UP TO 4 TIMES DAILY WHEN REQUIRED
     Route: 048
  9. METOPROLOL TARTRATE [Concomitant]
     Route: 048
  10. ZOCOR [Suspect]
     Route: 048
  11. WARFARIN SODIUM [Interacting]
     Dosage: 1-6 MG, QD
  12. AMLODIPINE [Concomitant]
     Route: 048

REACTIONS (3)
  - INTERNATIONAL NORMALISED RATIO INCREASED [None]
  - DRUG INTERACTION [None]
  - TRANSAMINASES INCREASED [None]
